FAERS Safety Report 4879474-8 (Version None)
Quarter: 2005Q4

REPORT INFORMATION
  Report Type: 
  Country: None (occurrence: None)
  Receive Date: 20051209
  Receipt Date: 20050930
  Transmission Date: 20060501
  Serious: Yes (Death)
  Sender: FDA-Public Use
  Company Number: USA-2005-0021391

PATIENT
  Age: 35 Year
  Sex: Male
  Weight: 57.6 kg

DRUGS (6)
  1. OXYCODONE HCL [Suspect]
     Route: 065
  2. COCAINE (COCAINE) [Suspect]
     Route: 065
  3. HYDROCODONE BITARTRATE [Suspect]
     Route: 065
  4. ALPRAZOLAM [Suspect]
     Route: 065
  5. DIAZEPAM [Suspect]
     Route: 065
  6. FENTANYL [Suspect]
     Route: 065

REACTIONS (1)
  - MULTIPLE DRUG OVERDOSE ACCIDENTAL [None]
